FAERS Safety Report 21095044 (Version 3)
Quarter: 2022Q4

REPORT INFORMATION
  Report Type: Spontaneous
  Country: JP (occurrence: JP)
  Receive Date: 20220718
  Receipt Date: 20221020
  Transmission Date: 20230113
  Serious: Yes (Other)
  Sender: FDA-Public Use
  Company Number: JP-BRISTOL-MYERS SQUIBB COMPANY-2022-072715

PATIENT
  Age: 61 Year
  Sex: Male

DRUGS (3)
  1. PACLITAXEL [Suspect]
     Active Substance: PACLITAXEL
     Indication: Gastric cancer
     Dosage: (100  MG/M2DAYS  1,  8,  15, Q28DAYS)
     Route: 065
     Dates: start: 201810
  2. PACLITAXEL [Suspect]
     Active Substance: PACLITAXEL
     Dosage: (100  MG/M2DAYS  1,  8,  15, Q28DAYS)
     Route: 065
     Dates: start: 201811
  3. RAMUCIRUMAB [Suspect]
     Active Substance: RAMUCIRUMAB
     Indication: Gastric cancer
     Dosage: (8  MG/KG  DAYS  1,  15, Q28DAYS)
     Route: 065
     Dates: start: 201810

REACTIONS (3)
  - Mucosal necrosis [Unknown]
  - Peri-implantitis [Unknown]
  - Streptococcal infection [Unknown]
